FAERS Safety Report 9860303 (Version 1)
Quarter: 2014Q1

REPORT INFORMATION
  Report Type: Spontaneous
  Country: LV (occurrence: LV)
  Receive Date: 20140201
  Receipt Date: 20140201
  Transmission Date: 20141002
  Serious: Yes (Life-Threatening, Hospitalization)
  Sender: FDA-Public Use
  Company Number: LV-PFIZER INC-2014026813

PATIENT
  Age: 83 Year
  Sex: Male

DRUGS (1)
  1. DALACIN [Suspect]
     Dosage: UNK
     Route: 048
     Dates: start: 20131217, end: 20131217

REACTIONS (5)
  - Dyspnoea [Unknown]
  - Agitation [Unknown]
  - Cyanosis [Unknown]
  - Pyrexia [Unknown]
  - Hypersensitivity [Unknown]
